FAERS Safety Report 8022505-7 (Version None)
Quarter: 2012Q1

REPORT INFORMATION
  Report Type: 
  Country: None (occurrence: None)
  Receive Date: 20120104
  Receipt Date: 20111213
  Transmission Date: 20120608
  Serious: Yes (Other)
  Sender: FDA-Public Use
  Company Number: US-SANOFI-AVENTIS-2011SA068044

PATIENT
  Age: 58 Year
  Sex: Male

DRUGS (6)
  1. COUMADIN [Concomitant]
  2. ACETAMINOPHEN [Concomitant]
  3. VITAMINS NOS [Concomitant]
  4. LOVENOX [Suspect]
     Route: 065
     Dates: start: 20110101
  5. FLEXERIL [Concomitant]
  6. LOVENOX [Suspect]
     Indication: PULMONARY THROMBOSIS
     Route: 065
     Dates: start: 20110909

REACTIONS (7)
  - THERAPY CESSATION [None]
  - ROAD TRAFFIC ACCIDENT [None]
  - INJECTION SITE PAIN [None]
  - INJECTION SITE SWELLING [None]
  - INJECTION SITE INFECTION [None]
  - PAIN [None]
  - INJECTION SITE HAEMATOMA [None]
